FAERS Safety Report 6728682-X (Version None)
Quarter: 2010Q2

REPORT INFORMATION
  Report Type: 
  Country: None (occurrence: None)
  Receive Date: 20100517
  Receipt Date: 20100512
  Transmission Date: 20101027
  Serious: Yes (Death, Hospitalization, Disabling)
  Sender: FDA-Public Use
  Company Number: PHHY2008JP06720

PATIENT
  Sex: Male

DRUGS (6)
  1. SIMULECT [Suspect]
     Indication: RENAL TRANSPLANT
     Dosage: 20 MG, ONCE/SINGLE
     Route: 042
     Dates: start: 20070312, end: 20070312
  2. NEORAL [Suspect]
     Indication: RENAL TRANSPLANT
     Dosage: 100 MG/DAY
     Route: 048
     Dates: start: 20070312, end: 20070312
  3. SANDIMMUNE [Suspect]
     Indication: RENAL TRANSPLANT
     Dosage: 30 MG/DAY
     Route: 042
     Dates: start: 20070313, end: 20070315
  4. PREDONINE [Concomitant]
     Indication: RENAL TRANSPLANT
     Dosage: 30 MG/DAY
     Route: 048
     Dates: start: 20070312, end: 20070314
  5. CELLCEPT [Concomitant]
     Indication: RENAL TRANSPLANT
     Dosage: 1000 MG/DAY
     Route: 048
     Dates: start: 20070312, end: 20070313
  6. METHYLPREDNISOLONE 4MG TAB [Concomitant]
     Indication: RENAL TRANSPLANT
     Dosage: 250 MG/DAY
     Route: 048
     Dates: start: 20070312, end: 20070313

REACTIONS (5)
  - COMPLICATIONS OF TRANSPLANTED KIDNEY [None]
  - DISSEMINATED INTRAVASCULAR COAGULATION [None]
  - GASTROINTESTINAL DISORDER [None]
  - GASTROINTESTINAL HAEMORRHAGE [None]
  - SURGERY [None]
